FAERS Safety Report 24904856 (Version 1)
Quarter: 2025Q1

REPORT INFORMATION
  Report Type: Spontaneous
  Country: SG (occurrence: SG)
  Receive Date: 20250130
  Receipt Date: 20250130
  Transmission Date: 20250409
  Serious: Yes (Other)
  Sender: BAYER HEALTHCARE PHARMACEUTICALS INC.
  Company Number: SG-BAYER-2025A013004

PATIENT
  Sex: Male

DRUGS (2)
  1. FINERENONE [Suspect]
     Active Substance: FINERENONE
     Indication: Type 2 diabetes mellitus
  2. SPIRONOLACTONE [Concomitant]
     Active Substance: SPIRONOLACTONE

REACTIONS (2)
  - Erectile dysfunction [None]
  - Albuminuria [None]
